FAERS Safety Report 5425388-4 (Version None)
Quarter: 2007Q3

REPORT INFORMATION
  Report Type: 
  Country: None (occurrence: None)
  Receive Date: 20070824
  Receipt Date: 20070824
  Transmission Date: 20080115
  Serious: Yes (Hospitalization)
  Sender: FDA-Public Use
  Company Number: DE-ROXANE LABORATORIES, INC-2007-DE-04938GD

PATIENT
  Age: 56 Year
  Sex: Female

DRUGS (14)
  1. MORPHINE [Suspect]
  2. PARACETAMOL [Suspect]
  3. CODEINE SUL TAB [Suspect]
  4. CITALOPRAM [Suspect]
  5. DICLOFENAC [Suspect]
  6. MEFLOQUINE [Suspect]
  7. AMITRIPTYLINE HCL [Suspect]
  8. FLUOXETINE [Suspect]
  9. LANSOPRAZOLE [Suspect]
  10. PENBUTOLOL [Suspect]
  11. RABEPRAZOLE SODIUM [Suspect]
  12. SENNA PREPARATION [Suspect]
  13. SIMETICONE [Suspect]
  14. ZOPICLONE [Suspect]

REACTIONS (3)
  - ABDOMINAL PAIN [None]
  - DRUG TOXICITY [None]
  - VOMITING [None]
